FAERS Safety Report 6599767-6 (Version None)
Quarter: 2010Q1

REPORT INFORMATION
  Report Type: 
  Country: None (occurrence: None)
  Receive Date: 20100224
  Receipt Date: 20100214
  Transmission Date: 20100710
  Serious: Yes (Other)
  Sender: FDA-Public Use
  Company Number: PHHY2010EG06816

PATIENT
  Age: 43 Year
  Sex: Male
  Weight: 80 kg

DRUGS (3)
  1. GLEEVEC [Suspect]
     Indication: CHRONIC MYELOID LEUKAEMIA
     Dosage: 4 TABLET PER DAY
     Route: 048
     Dates: start: 20070501
  2. GLEEVEC [Suspect]
     Dosage: 6 TABLET/DAY
  3. XANAX [Concomitant]
     Dosage: 0.25 MG, PRN

REACTIONS (2)
  - ASPERMIA [None]
  - INFERTILITY MALE [None]
